FAERS Safety Report 8997012 (Version 2)
Quarter: 2013Q1

REPORT INFORMATION
  Report Type: Report from Study
  Country: US (occurrence: US)
  Receive Date: 20130104
  Receipt Date: 20130116
  Transmission Date: 20140127
  Serious: Yes (Hospitalization)
  Sender: FDA-Public Use
  Company Number: US-ACTELION-A-NJ2012-77156

PATIENT
  Age: 77 Year
  Sex: Female

DRUGS (5)
  1. TRACLEER [Suspect]
     Indication: PULMONARY ARTERIAL HYPERTENSION
     Dosage: 125 MG, BID
     Route: 048
     Dates: start: 20060106
  2. TRACLEER [Suspect]
     Dosage: 62.5 MG, BID
     Route: 048
     Dates: start: 200511, end: 20060105
  3. PREDNISONE [Suspect]
  4. ADCIRCA [Concomitant]
  5. TYVASO [Concomitant]

REACTIONS (3)
  - Psychotic disorder [Recovered/Resolved]
  - Confusional state [Recovered/Resolved]
  - Throat irritation [Recovered/Resolved]
